FAERS Safety Report 9293400 (Version 2)
Quarter: 2013Q2

REPORT INFORMATION
  Report Type: Spontaneous
  Country: US (occurrence: US)
  Receive Date: 20130516
  Receipt Date: 20130524
  Transmission Date: 20140414
  Serious: No
  Sender: FDA-Public Use
  Company Number: US-009507513-1305USA009132

PATIENT
  Age: 61 Year
  Sex: Female

DRUGS (2)
  1. THERAPY UNSPECIFIED [Suspect]
     Indication: ASTHMA
     Dosage: 10 MG, ONCE DAILY IN THE EVENING
     Route: 048
     Dates: start: 201303, end: 201303
  2. MONTELUKAST SODIUM [Suspect]
     Indication: ASTHMA
     Dosage: 10 MG, ONCE DAILY IN THE EVENING
     Route: 048
     Dates: start: 201303, end: 201303

REACTIONS (4)
  - Cough [Recovered/Resolved]
  - Drug ineffective [Unknown]
  - Retching [Recovered/Resolved]
  - Choking [Recovered/Resolved]
